FAERS Safety Report 5316756-X (Version None)
Quarter: 2007Q2

REPORT INFORMATION
  Report Type: 
  Country: None (occurrence: None)
  Receive Date: 20070504
  Receipt Date: 20070425
  Transmission Date: 20071010
  Serious: Yes (Hospitalization, Other)
  Sender: FDA-Public Use
  Company Number: US-JNJFOC-20070402238

PATIENT
  Sex: Female
  Weight: 70.31 kg

DRUGS (11)
  1. REMICADE [Suspect]
     Route: 042
  2. REMICADE [Suspect]
     Indication: COLITIS
     Route: 042
  3. REMICADE [Suspect]
     Indication: CROHN'S DISEASE
     Dosage: BEEN ON INFLIXIMAB APPROXIMATELY 5-6 MONTHS.
     Route: 042
  4. STADOL [Concomitant]
     Route: 045
  5. CHROMAGEN [Concomitant]
  6. DILAUDID [Concomitant]
     Indication: PAIN
  7. CIPRO [Concomitant]
  8. HYDROCODONE [Concomitant]
     Indication: PAIN
  9. PROTONIX [Concomitant]
  10. ATENOLOL [Concomitant]
  11. GIBAUER [Concomitant]

REACTIONS (8)
  - ARTHRALGIA [None]
  - CHEST PAIN [None]
  - COLITIS [None]
  - DEHYDRATION [None]
  - INFUSION RELATED REACTION [None]
  - NAUSEA [None]
  - RENAL FAILURE ACUTE [None]
  - VOMITING [None]
